FAERS Safety Report 6918499-5 (Version None)
Quarter: 2010Q3

REPORT INFORMATION
  Report Type: 
  Country: None (occurrence: None)
  Receive Date: 20100811
  Receipt Date: 20100809
  Transmission Date: 20110219
  Serious: Yes (Other)
  Sender: FDA-Public Use
  Company Number: US-ASTRAZENECA-2007UW21523

PATIENT
  Age: 13719 Day
  Sex: Female
  Weight: 114.3 kg

DRUGS (13)
  1. SEROQUEL [Suspect]
     Indication: DEPRESSION
     Dosage: 300 MG TO 600 MG
     Route: 048
     Dates: start: 20010601
  2. SEROQUEL [Suspect]
     Indication: SCHIZOPHRENIA
     Dosage: 300 MG TO 600 MG
     Route: 048
     Dates: start: 20010601
  3. SEROQUEL [Suspect]
     Route: 048
     Dates: start: 20040419
  4. SEROQUEL [Suspect]
     Route: 048
     Dates: start: 20040419
  5. RISPERDAL [Concomitant]
     Indication: DEPRESSION
     Dosage: 2, 4 AND 6 MG
     Dates: start: 20020901
  6. RISPERDAL [Concomitant]
     Indication: SCHIZOPHRENIA
     Dosage: 2, 4 AND 6 MG
     Dates: start: 20020901
  7. ABILIFY [Concomitant]
     Dates: start: 20040419
  8. GEODON [Concomitant]
     Dosage: 60-80-120 MG
     Dates: start: 20020901
  9. NEURONTIN [Concomitant]
     Dosage: 100-400 MG
     Dates: start: 20020901
  10. SERZONE [Concomitant]
     Dates: start: 20020901
  11. LITHIUM CARBONATE [Concomitant]
     Dates: start: 20020901
  12. WELLBUTRIN [Concomitant]
  13. LEXAPRO [Concomitant]
     Dosage: 10-30 MG
     Dates: start: 20020901

REACTIONS (3)
  - HOMICIDAL IDEATION [None]
  - SUICIDAL IDEATION [None]
  - TYPE 2 DIABETES MELLITUS [None]
